FAERS Safety Report 12768954 (Version 1)
Quarter: 2016Q3

REPORT INFORMATION
  Report Type: Spontaneous
  Country: US (occurrence: US)
  Receive Date: 20160921
  Receipt Date: 20160921
  Transmission Date: 20161109
  Serious: No
  Sender: FDA-Public Use
  Company Number: US-JAZZ-2016-US-010361

PATIENT
  Sex: Male

DRUGS (33)
  1. XYREM [Suspect]
     Active Substance: SODIUM OXYBATE
     Dosage: 4.5 G, BID
     Route: 048
     Dates: start: 201408
  2. RANITIDINE. [Concomitant]
     Active Substance: RANITIDINE
  3. LORAZEPAM. [Concomitant]
     Active Substance: LORAZEPAM
  4. NEXIUM [Concomitant]
     Active Substance: ESOMEPRAZOLE MAGNESIUM
  5. XYREM [Suspect]
     Active Substance: SODIUM OXYBATE
     Indication: COMPLEX REGIONAL PAIN SYNDROME
     Dosage: 2.25 G, BID
     Route: 048
     Dates: start: 201407, end: 201408
  6. CYMBALTA [Concomitant]
     Active Substance: DULOXETINE HYDROCHLORIDE
  7. LYRICA [Concomitant]
     Active Substance: PREGABALIN
  8. ONDANSETRON [Concomitant]
     Active Substance: ONDANSETRON
  9. BUPROPION HCL [Concomitant]
     Active Substance: BUPROPION HYDROCHLORIDE
  10. ANDROGEL [Concomitant]
     Active Substance: TESTOSTERONE
  11. PROBIOTIC [Concomitant]
     Active Substance: PROBIOTICS NOS
  12. PROVIGIL [Concomitant]
     Active Substance: MODAFINIL
  13. CELEBREX [Concomitant]
     Active Substance: CELECOXIB
  14. LIDODERM [Concomitant]
     Active Substance: LIDOCAINE
  15. VITAMIN D3 [Concomitant]
     Active Substance: CHOLECALCIFEROL
  16. CENTRUM [Concomitant]
     Active Substance: VITAMINS
  17. DYMISTA [Concomitant]
     Active Substance: AZELASTINE HYDROCHLORIDE\FLUTICASONE PROPIONATE
  18. TUMS SMOOTHIES [Concomitant]
     Active Substance: CALCIUM CARBONATE
  19. CALCIUM CITRATE [Concomitant]
     Active Substance: CALCIUM CITRATE
  20. TOPIRAMATE. [Concomitant]
     Active Substance: TOPIRAMATE
  21. ZOMIG [Concomitant]
     Active Substance: ZOLMITRIPTAN
  22. VITAMIN B6 [Concomitant]
     Active Substance: PYRIDOXINE HYDROCHLORIDE
  23. METOPROLOL SUCCINATE. [Concomitant]
     Active Substance: METOPROLOL SUCCINATE
  24. KETAMINE [Concomitant]
     Active Substance: KETAMINE
  25. XYREM [Suspect]
     Active Substance: SODIUM OXYBATE
     Dosage: DOSE ADJUSTMENTS
     Route: 048
     Dates: start: 201408, end: 201408
  26. VITAMIN B12 + FOLIC ACID [Concomitant]
  27. PENNSAID [Concomitant]
     Active Substance: DICLOFENAC SODIUM
  28. INDOCIN [Concomitant]
     Active Substance: INDOMETHACIN\INDOMETHACIN SODIUM
  29. CLONAZEPAM. [Concomitant]
     Active Substance: CLONAZEPAM
  30. LAMOTRIGINE. [Concomitant]
     Active Substance: LAMOTRIGINE
  31. FISH OIL CONCENTRATE [Concomitant]
  32. FLONASE [Concomitant]
     Active Substance: FLUTICASONE PROPIONATE
  33. AMBIEN [Concomitant]
     Active Substance: ZOLPIDEM TARTRATE

REACTIONS (2)
  - Therapeutic response unexpected [Unknown]
  - Pre-existing condition improved [Unknown]
